FAERS Safety Report 8477871-5 (Version None)
Quarter: 2012Q2

REPORT INFORMATION
  Report Type: 
  Country: None (occurrence: None)
  Receive Date: 20120629
  Receipt Date: 20120620
  Transmission Date: 20120825
  Serious: Yes (Other)
  Sender: FDA-Public Use
  Company Number: MX-ABBOTT-12P-107-0940907-00

PATIENT
  Sex: Male
  Weight: 89 kg

DRUGS (2)
  1. HUMIRA [Suspect]
     Indication: ANKYLOSING SPONDYLITIS
     Route: 058
     Dates: start: 20090808
  2. ANTALGIN [Concomitant]
     Indication: ANKYLOSING SPONDYLITIS
     Route: 048
     Dates: start: 20090601

REACTIONS (6)
  - OCULAR DISCOMFORT [None]
  - VISION BLURRED [None]
  - FOREIGN BODY IN EYE [None]
  - ARTHRALGIA [None]
  - RETINAL DETACHMENT [None]
  - VISUAL IMPAIRMENT [None]
